FAERS Safety Report 9325445 (Version 3)
Quarter: 2013Q3

REPORT INFORMATION
  Report Type: Spontaneous
  Country: GB (occurrence: GB)
  Receive Date: 20130604
  Receipt Date: 20130821
  Transmission Date: 20140515
  Serious: Yes (Life-Threatening, Other)
  Sender: FDA-Public Use
  Company Number: GB-009507513-1304GBR004877

PATIENT
  Age: 60 Year
  Sex: Female

DRUGS (2)
  1. SYCREST [Suspect]
     Indication: BIPOLAR DISORDER
     Dosage: 15 MG, QD
     Route: 060
  2. SYCREST [Suspect]
     Dosage: 10 MG, QD
     Route: 048
     Dates: start: 201202, end: 20120611

REACTIONS (3)
  - Suicidal ideation [Recovered/Resolved]
  - Oral pain [Recovered/Resolved]
  - Inappropriate schedule of drug administration [Unknown]
